FAERS Safety Report 18042036 (Version 1)
Quarter: 2020Q3

REPORT INFORMATION
  Report Type: Report from Study
  Country: US (occurrence: US)
  Receive Date: 20200720
  Receipt Date: 20200720
  Transmission Date: 20201103
  Serious: Yes (Other)
  Sender: FDA-Public Use
  Company Number: US-BRISTOL-MYERS SQUIBB COMPANY-BMS-2020-056670

PATIENT
  Sex: Female

DRUGS (1)
  1. APIXABAN [Suspect]
     Active Substance: APIXABAN
     Indication: PRODUCT USED FOR UNKNOWN INDICATION
     Dosage: UNK
     Route: 065

REACTIONS (8)
  - Hypertension [Unknown]
  - Asthenia [Unknown]
  - Chest discomfort [Unknown]
  - Atrial fibrillation [Unknown]
  - Irritable bowel syndrome [Unknown]
  - Flatulence [Unknown]
  - Haemorrhoids [Unknown]
  - Haemorrhage [Unknown]
